FAERS Safety Report 6980526-7 (Version None)
Quarter: 2010Q3

REPORT INFORMATION
  Report Type: 
  Country: None (occurrence: None)
  Receive Date: 20100914
  Receipt Date: 20100902
  Transmission Date: 20110219
  Serious: Yes (Other)
  Sender: FDA-Public Use
  Company Number: PHHY2010US58492

PATIENT
  Sex: Male

DRUGS (2)
  1. LOPRESSOR [Suspect]
  2. LIPITOR [Concomitant]

REACTIONS (2)
  - MUSCULAR WEAKNESS [None]
  - VASCULAR GRAFT [None]
